FAERS Safety Report 7526833-0 (Version None)
Quarter: 2011Q2

REPORT INFORMATION
  Report Type: 
  Country: None (occurrence: None)
  Receive Date: 20110606
  Receipt Date: 20110527
  Transmission Date: 20111010
  Serious: Yes (Other)
  Sender: FDA-Public Use
  Company Number: US-ASTRAZENECA-2010SE20175

PATIENT
  Sex: Female

DRUGS (31)
  1. CRESTOR [Suspect]
     Route: 048
  2. ATROVENT [Concomitant]
     Dosage: 18 MCG AEROSOLW/ADAPTER BID
  3. RHINOCORT [Concomitant]
     Route: 045
  4. DALLERGY [Concomitant]
     Dosage: 20-8-2.5 MG BID SUSTAINED RELEASE 12 HR 5 G
  5. VITAMIN D [Concomitant]
  6. MOMETASONE FUROATE [Concomitant]
  7. FOLIC ACID [Concomitant]
     Dosage: 400 MCG SID
  8. AZMACORT [Concomitant]
     Dosage: 100 MCG AEROSOL W/ADAPTER BID
  9. GARLIC SUPPLEMENT [Concomitant]
     Dosage: 650 MG SID
  10. VITAMIN B COMPLETE [Concomitant]
     Dosage: BID WITH FOOD
  11. SYNTHROID [Concomitant]
  12. THEOPHYLLINE [Concomitant]
  13. CORAL CALCIUM [Concomitant]
     Dosage: 500 MG QAM WITH FOOD
  14. FISH OIL [Concomitant]
  15. ASCORBIC ACID [Concomitant]
     Dosage: 450 MG WITH FOOD
  16. VITAMIN E [Concomitant]
     Dosage: 400 IU QAM WITH FOOD
  17. PRILOSEC [Suspect]
     Route: 048
  18. PROTONIX [Concomitant]
  19. AXELAR [Concomitant]
     Dosage: 400 MG
  20. SHARK CARTILAGE [Concomitant]
  21. LIDODERM [Suspect]
  22. AMBIEN [Concomitant]
     Dosage: 10 MG QN
  23. LEVAQUIN [Concomitant]
     Dosage: 500 MG QM
  24. ZOVIRAX [Concomitant]
  25. COENZYME Q10 [Concomitant]
     Dosage: 100 MG 1 TABLET SID
  26. SEROQUEL [Suspect]
     Route: 048
  27. NEURONTIN [Concomitant]
     Dosage: 100 MG 3 CAPSULES QID
  28. LECITHIN [Concomitant]
     Dosage: 1200 MG SID
  29. SAVELLA [Concomitant]
  30. TRICOR [Concomitant]
  31. BLUEBERRY DROPS [Concomitant]
     Dosage: 1 ML WITH WATER DAILY

REACTIONS (8)
  - LOSS OF CONSCIOUSNESS [None]
  - MYALGIA [None]
  - SWOLLEN TONGUE [None]
  - DISORIENTATION [None]
  - DRUG INEFFECTIVE [None]
  - FEELING JITTERY [None]
  - DYSPNOEA [None]
  - ARTHRALGIA [None]
